FAERS Safety Report 9870405 (Version 1)
Quarter: 2014Q1

REPORT INFORMATION
  Report Type: Spontaneous
  Country: US (occurrence: None)
  Receive Date: 20140204
  Receipt Date: 20140204
  Transmission Date: 20141002
  Serious: Yes (Disabling)
  Sender: FDA-Public Use
  Company Number: None

PATIENT
  Age: 61 Year
  Sex: Female
  Weight: 78.93 kg

DRUGS (1)
  1. COMBIGAN [Suspect]
     Indication: INTRAOCULAR PRESSURE INCREASED
     Dosage: 1 DROP  TWICE DAILY  INTO THE EYE
     Route: 047
     Dates: start: 20140131

REACTIONS (8)
  - Eye irritation [None]
  - Erythema of eyelid [None]
  - Blister [None]
  - Vision blurred [None]
  - Conjunctivitis [None]
  - Fatigue [None]
  - Muscular weakness [None]
  - Fall [None]
